FAERS Safety Report 10008854 (Version 1)
Quarter: 2014Q1

REPORT INFORMATION
  Report Type: Spontaneous
  Country: US (occurrence: US)
  Receive Date: 20140312
  Receipt Date: 20140312
  Transmission Date: 20141002
  Serious: No
  Sender: FDA-Public Use
  Company Number: US-INCYTE CORPORATION-2012IN000759

PATIENT
  Age: 63 Year
  Sex: Male

DRUGS (4)
  1. JAKAFI [Suspect]
     Indication: MYELOFIBROSIS
     Dosage: UNK
     Route: 048
     Dates: start: 20111224
  2. JAKAFI [Suspect]
     Dosage: 20 MG, BID
     Route: 048
     Dates: start: 201201, end: 201202
  3. JAKAFI [Suspect]
     Dosage: 25 MG, BID
     Route: 048
     Dates: start: 201202, end: 2012
  4. JAKAFI [Suspect]
     Dosage: 15 MG, BID
     Route: 048
     Dates: start: 201204

REACTIONS (2)
  - Liver function test abnormal [Unknown]
  - Blood potassium increased [Unknown]
